FAERS Safety Report 17458775 (Version 3)
Quarter: 2020Q4

REPORT INFORMATION
  Report Type: Spontaneous
  Country: JP (occurrence: JP)
  Receive Date: 20200225
  Receipt Date: 20201102
  Transmission Date: 20210113
  Serious: Yes (Hospitalization)
  Sender: FDA-Public Use
  Company Number: JP-JNJFOC-20200225698

PATIENT
  Age: 49 Year
  Sex: Male

DRUGS (12)
  1. PREZISTA [Suspect]
     Active Substance: DARUNAVIR ETHANOLATE
     Route: 048
     Dates: start: 20161025
  2. FACTOR VIII (ANTIHAEMOPHILIC FACTOR) [Concomitant]
     Active Substance: ANTIHEMOPHILIC FACTOR HUMAN
     Indication: FACTOR VIII DEFICIENCY
     Dosage: UNKNOWN
     Route: 042
     Dates: start: 20170401
  3. TIVICAY [Concomitant]
     Active Substance: DOLUTEGRAVIR SODIUM
     Indication: HIV INFECTION
     Route: 048
     Dates: start: 20161004, end: 20161017
  4. ROSUVASTATIN CALCIUM. [Concomitant]
     Active Substance: ROSUVASTATIN CALCIUM
     Indication: DYSLIPIDAEMIA
     Dosage: UNKNOWN
     Route: 048
     Dates: start: 20180515
  5. PREZISTA [Suspect]
     Active Substance: DARUNAVIR ETHANOLATE
     Route: 048
     Dates: start: 20161024, end: 20161024
  6. CRESTOR [Concomitant]
     Active Substance: ROSUVASTATIN CALCIUM
     Indication: DYSLIPIDAEMIA
     Dosage: UNKNOWN
     Route: 048
     Dates: start: 20170401, end: 20180514
  7. TIVICAY [Concomitant]
     Active Substance: DOLUTEGRAVIR SODIUM
     Indication: HIV INFECTION
     Route: 048
     Dates: start: 20161020
  8. NORVIR [Concomitant]
     Active Substance: RITONAVIR
     Indication: HIV INFECTION
     Route: 048
     Dates: start: 20161024, end: 20161024
  9. NORVIR [Concomitant]
     Active Substance: RITONAVIR
     Indication: HIV INFECTION
     Route: 048
     Dates: start: 20161004, end: 20161017
  10. PREZISTA [Suspect]
     Active Substance: DARUNAVIR ETHANOLATE
     Indication: HIV INFECTION
     Route: 048
     Dates: start: 20161004, end: 20161017
  11. TIVICAY [Concomitant]
     Active Substance: DOLUTEGRAVIR SODIUM
     Indication: HIV INFECTION
     Route: 048
     Dates: start: 20161019, end: 20161019
  12. NORVIR [Concomitant]
     Active Substance: RITONAVIR
     Indication: HIV INFECTION
     Route: 048
     Dates: start: 20161025

REACTIONS (2)
  - Hypertension [Recovering/Resolving]
  - Pericoronitis [Recovered/Resolved]

NARRATIVE: CASE EVENT DATE: 20181106
